FAERS Safety Report 8131063-8 (Version None)
Quarter: 2012Q1

REPORT INFORMATION
  Report Type: 
  Country: None (occurrence: None)
  Receive Date: 20120213
  Receipt Date: 20120207
  Transmission Date: 20120608
  Serious: Yes (Other)
  Sender: FDA-Public Use
  Company Number: US-BAYER-2012-012493

PATIENT
  Sex: Female

DRUGS (2)
  1. DIET PILL LIPOZENE [Concomitant]
  2. MIRENA [Suspect]
     Dosage: 20 ?G/D, CONT
     Route: 015

REACTIONS (1)
  - VAGINAL HAEMORRHAGE [None]
